FAERS Safety Report 9572450 (Version 1)
Quarter: 2013Q3

REPORT INFORMATION
  Report Type: Spontaneous
  Country: US (occurrence: None)
  Receive Date: 20130930
  Receipt Date: 20130930
  Transmission Date: 20140515
  Serious: Yes (Other)
  Sender: FDA-Public Use
  Company Number: None

PATIENT
  Age: 7 Year
  Sex: Male
  Weight: 72.12 kg

DRUGS (2)
  1. XOPENEX [Suspect]
     Indication: ASTHMA
     Dosage: 1.3 ML, 1 UNIT Q4HRS PRN VIA NEBULIZER
     Dates: start: 20110421
  2. XOPENEX [Suspect]
     Indication: UPPER RESPIRATORY TRACT INFECTION
     Dosage: 1.3 ML, 1 UNIT Q4HRS PRN VIA NEBULIZER
     Dates: start: 20110421

REACTIONS (2)
  - Tachycardia [None]
  - Sensory disturbance [None]
